FAERS Safety Report 9559172 (Version 1)
Quarter: 2013Q2

REPORT INFORMATION
  Report Type: Spontaneous
  Country: US (occurrence: None)
  Receive Date: 20130617
  Receipt Date: 20130617
  Transmission Date: 20140414
  Serious: Yes (Other)
  Sender: FDA-Public Use
  Company Number: EUS-2013-00296

PATIENT
  Age: 62 Month
  Sex: Male

DRUGS (5)
  1. ASPARAGINASE (ASPARAGINASE) (UNKNOWN) [Suspect]
     Indication: ACUTE LYMPHOCYTIC LEUKAEMIA
  2. VINCRISTINE (VINCRISTINE) (UNKNOWN) [Concomitant]
  3. DAUNORUBICINE (DAUNORUBICIN) [Concomitant]
  4. PREDNISONE (PREDNISONE) [Concomitant]
  5. METHOTREXATE (METHOTREXATE) [Concomitant]

REACTIONS (1)
  - Thrombosis [None]
